FAERS Safety Report 25155985 (Version 1)
Quarter: 2025Q2

REPORT INFORMATION
  Report Type: Spontaneous
  Country: US (occurrence: None)
  Receive Date: 20250403
  Receipt Date: 20250403
  Transmission Date: 20250717
  Serious: No
  Sender: INCYTE
  Company Number: US-INCYTE CORPORATION-2025IN003206

PATIENT

DRUGS (2)
  1. JAKAFI [Suspect]
     Active Substance: RUXOLITINIB
     Indication: Chronic graft versus host disease
     Dosage: 5 MILLIGRAM, BID
  2. JAKAFI [Suspect]
     Active Substance: RUXOLITINIB
     Dosage: 5 MILLIGRAM,  2 PILLS IN THE MORNING AND 1 AT NIGHT

REACTIONS (5)
  - Muscle spasms [Unknown]
  - Inflammation [Unknown]
  - Gastroenteritis viral [Unknown]
  - Rash [Unknown]
  - Headache [Unknown]
